FAERS Safety Report 6355643-5 (Version None)
Quarter: 2009Q3

REPORT INFORMATION
  Report Type: 
  Country: None (occurrence: None)
  Receive Date: 20090910
  Receipt Date: 20090827
  Transmission Date: 20100115
  Serious: Yes (Life-Threatening, Hospitalization, Disabling)
  Sender: FDA-Public Use
  Company Number: ADR18842009

PATIENT
  Age: 1 Year
  Sex: Male

DRUGS (10)
  1. CITALOPRAM HYDROBROMIDE [Suspect]
     Indication: DEPRESSION
     Dosage: 20 MG (1/1DAY); TRANSPLACENTAL
     Route: 064
  2. . [Concomitant]
  3. ... [Concomitant]
  4. . [Concomitant]
  5. . [Concomitant]
  6. ... [Concomitant]
  7. ... [Concomitant]
  8. ... [Concomitant]
  9. ... [Concomitant]
  10. ... [Concomitant]

REACTIONS (5)
  - CEREBRAL INFARCTION [None]
  - CEREBRAL PALSY [None]
  - CONVULSION NEONATAL [None]
  - MATERNAL DRUGS AFFECTING FOETUS [None]
  - TONIC CONVULSION [None]
